FAERS Safety Report 15356190 (Version 1)
Quarter: 2018Q3

REPORT INFORMATION
  Report Type: Spontaneous
  Country: IT (occurrence: IT)
  Receive Date: 20180906
  Receipt Date: 20180906
  Transmission Date: 20181010
  Serious: Yes (Other)
  Sender: FDA-Public Use
  Company Number: IT-HIKMA PHARMACEUTICALS USA INC.-IT-H14001-18-07216

PATIENT
  Age: 71 Year
  Sex: Male
  Weight: 85 kg

DRUGS (1)
  1. IRINOTECAN HIKMA [Suspect]
     Active Substance: IRINOTECAN
     Indication: GASTRIC NEOPLASM
     Dosage: CYCLICAL
     Route: 042
     Dates: start: 20180620, end: 20180724

REACTIONS (2)
  - Nail disorder [Recovering/Resolving]
  - Paraesthesia [Recovering/Resolving]

NARRATIVE: CASE EVENT DATE: 20180620
